FAERS Safety Report 7212684-3 (Version None)
Quarter: 2011Q1

REPORT INFORMATION
  Report Type: 
  Country: None (occurrence: None)
  Receive Date: 20110106
  Receipt Date: 20110103
  Transmission Date: 20110831
  Serious: Yes (Hospitalization)
  Sender: FDA-Public Use
  Company Number: US-JNJFOC-20110100352

PATIENT
  Sex: Female
  Weight: 89.36 kg

DRUGS (5)
  1. DURAGESIC-50 [Suspect]
     Indication: BACK PAIN
     Route: 062
  2. DURAGESIC-50 [Suspect]
     Route: 062
  3. ALPRAZOLAM [Concomitant]
     Route: 048
  4. LEXAPRO [Concomitant]
     Indication: ANTIDEPRESSANT THERAPY
     Route: 048
  5. DURAGESIC-50 [Suspect]
     Route: 062

REACTIONS (24)
  - SCIATIC NERVE INJURY [None]
  - DELIRIUM TREMENS [None]
  - INTERVERTEBRAL DISC DISORDER [None]
  - SKIN DISCOLOURATION [None]
  - DYSSTASIA [None]
  - PARANOIA [None]
  - BACK DISORDER [None]
  - WHITE BLOOD CELL COUNT INCREASED [None]
  - ANGER [None]
  - THINKING ABNORMAL [None]
  - PRODUCT QUALITY ISSUE [None]
  - ABNORMAL LOSS OF WEIGHT [None]
  - HYPERSENSITIVITY [None]
  - LOSS OF CONSCIOUSNESS [None]
  - DELUSION [None]
  - DEPRESSION [None]
  - PYREXIA [None]
  - FATIGUE [None]
  - FEELING ABNORMAL [None]
  - DYSPNOEA [None]
  - ASTHENIA [None]
  - ALOPECIA [None]
  - SUICIDE ATTEMPT [None]
  - VOMITING [None]
